FAERS Safety Report 7115291-6 (Version None)
Quarter: 2010Q4

REPORT INFORMATION
  Report Type: 
  Country: None (occurrence: None)
  Receive Date: 20101117
  Receipt Date: 20101117
  Transmission Date: 20110411
  Serious: Yes (Hospitalization)
  Sender: FDA-Public Use
  Company Number: None

PATIENT
  Age: 61 Year
  Sex: Male
  Weight: 90 kg

DRUGS (2)
  1. WARFARIN SODIUM [Suspect]
     Dosage: 2 MG M/F, 3MG REST OF WEEK DAILY
  2. EFFIENT [Suspect]
     Dosage: 10MG DAILY

REACTIONS (11)
  - ABDOMINAL PAIN LOWER [None]
  - ANGINA PECTORIS [None]
  - ATRIAL FLUTTER [None]
  - CHOLECYSTITIS CHRONIC [None]
  - DEFAECATION URGENCY [None]
  - DIARRHOEA HAEMORRHAGIC [None]
  - EPISTAXIS [None]
  - HAEMORRHAGE [None]
  - NAUSEA [None]
  - PANCYTOPENIA [None]
  - SEPTIC SHOCK [None]
